FAERS Safety Report 24440683 (Version 2)
Quarter: 2024Q4

REPORT INFORMATION
  Report Type: Report from Study
  Country: AU (occurrence: AU)
  Receive Date: 20241016
  Receipt Date: 20241017
  Transmission Date: 20250115
  Serious: No
  Sender: ROCHE
  Company Number: AU-ROCHE-3316591

PATIENT
  Age: 34 Year
  Sex: Male

DRUGS (18)
  1. HEMLIBRA [Suspect]
     Active Substance: EMICIZUMAB-KXWH
     Indication: Haemophilia
     Route: 058
  2. HEMLIBRA [Suspect]
     Active Substance: EMICIZUMAB-KXWH
     Dosage: 60 MG/ML
     Route: 058
     Dates: start: 20220904
  3. HEMLIBRA [Suspect]
     Active Substance: EMICIZUMAB-KXWH
     Route: 058
     Dates: start: 20220904
  4. HEMLIBRA [Suspect]
     Active Substance: EMICIZUMAB-KXWH
     Route: 058
     Dates: start: 20220801
  5. HEMLIBRA [Suspect]
     Active Substance: EMICIZUMAB-KXWH
     Dosage: 60 MG/ML
     Route: 058
     Dates: start: 20220801
  6. HEMLIBRA [Suspect]
     Active Substance: EMICIZUMAB-KXWH
     Dosage: 60 MG/ML
     Route: 058
     Dates: start: 20220708
  7. HEMLIBRA [Suspect]
     Active Substance: EMICIZUMAB-KXWH
     Route: 058
     Dates: start: 20220708
  8. HEMLIBRA [Suspect]
     Active Substance: EMICIZUMAB-KXWH
     Dosage: 60 MG/ML
     Route: 058
     Dates: start: 20220610
  9. HEMLIBRA [Suspect]
     Active Substance: EMICIZUMAB-KXWH
     Route: 058
     Dates: start: 20220610
  10. HEMLIBRA [Suspect]
     Active Substance: EMICIZUMAB-KXWH
     Route: 058
     Dates: start: 20230228
  11. HEMLIBRA [Suspect]
     Active Substance: EMICIZUMAB-KXWH
     Route: 058
     Dates: start: 20230228
  12. HEMLIBRA [Suspect]
     Active Substance: EMICIZUMAB-KXWH
     Route: 058
     Dates: start: 20230207
  13. HEMLIBRA [Suspect]
     Active Substance: EMICIZUMAB-KXWH
     Route: 058
     Dates: start: 20230207
  14. HEMLIBRA [Suspect]
     Active Substance: EMICIZUMAB-KXWH
     Route: 058
     Dates: start: 20221008
  15. HEMLIBRA [Suspect]
     Active Substance: EMICIZUMAB-KXWH
     Dosage: 60 MG/ML
     Route: 058
     Dates: start: 20221008
  16. CELECOXIB [Concomitant]
     Active Substance: CELECOXIB
     Dosage: TAKE 1 CAPSULE IN THE MORNING WITH FOOD WHEN REQUIRED
     Dates: start: 20220912
  17. CELECOXIB [Concomitant]
     Active Substance: CELECOXIB
     Dosage: TAKE 1 CAPSULE IN THE MORNING WITH FOOD WHEN REQUIRED
     Dates: start: 20220801
  18. CELECOXIB [Concomitant]
     Active Substance: CELECOXIB
     Dosage: TAKE 1 CAPSULE IN THE MORNING AND 1 CAPSULE IN THE EVENING WITH OR AFTER FOOD
     Dates: start: 20230426

REACTIONS (2)
  - Product dispensing error [Unknown]
  - No adverse event [Unknown]

NARRATIVE: CASE EVENT DATE: 20230322
